FAERS Safety Report 8405112-3 (Version None)
Quarter: 2012Q2

REPORT INFORMATION
  Report Type: 
  Country: None (occurrence: None)
  Receive Date: 20120602
  Receipt Date: 20120503
  Transmission Date: 20120825
  Serious: No
  Sender: FDA-Public Use
  Company Number: US-BAYER-2012-048517

PATIENT
  Sex: Female

DRUGS (3)
  1. ALEVE (CAPLET) [Suspect]
     Dosage: 1 DF, QD
     Route: 048
     Dates: start: 20120430, end: 20120502
  2. ASPIRIN [Suspect]
     Dosage: 1 DF, QD
     Route: 048
  3. EXTRA STRENGTH TYLENOL [Concomitant]

REACTIONS (3)
  - FLATULENCE [None]
  - BLOOD PRESSURE INCREASED [None]
  - ABDOMINAL DISTENSION [None]
